FAERS Safety Report 7235166-1 (Version None)
Quarter: 2011Q1

REPORT INFORMATION
  Report Type: 
  Country: None (occurrence: None)
  Receive Date: 20110114
  Receipt Date: 20110114
  Transmission Date: 20110831
  Serious: Yes (Life-Threatening, Hospitalization)
  Sender: FDA-Public Use
  Company Number: None

PATIENT
  Age: 52 Year
  Sex: Female
  Weight: 94.3482 kg

DRUGS (1)
  1. AVELOX [Suspect]
     Indication: SINUSITIS
     Dosage: 1 PER DAY 10 DAYS PO
     Route: 048
     Dates: start: 20101209, end: 20101216

REACTIONS (9)
  - FATIGUE [None]
  - MALAISE [None]
  - DIZZINESS [None]
  - HYPERHIDROSIS [None]
  - ASTHENIA [None]
  - CHEST PAIN [None]
  - PAIN [None]
  - HYPOAESTHESIA [None]
  - PAIN IN EXTREMITY [None]
